FAERS Safety Report 22115856 (Version 1)
Quarter: 2023Q1

REPORT INFORMATION
  Report Type: Spontaneous
  Country: US (occurrence: US)
  Receive Date: 20230320
  Receipt Date: 20230320
  Transmission Date: 20230417
  Serious: Yes (Death, Other)
  Sender: FDA-Public Use
  Company Number: US-AMGEN-USASP2023046206

PATIENT

DRUGS (1)
  1. RITUXIMAB [Suspect]
     Active Substance: RITUXIMAB
     Indication: Hypergammaglobulinaemia benign monoclonal
     Dosage: UNK
     Route: 065

REACTIONS (3)
  - Death [Fatal]
  - Hypergammaglobulinaemia benign monoclonal [Unknown]
  - Off label use [Unknown]
